FAERS Safety Report 6671970-6 (Version None)
Quarter: 2010Q2

REPORT INFORMATION
  Report Type: 
  Country: None (occurrence: None)
  Receive Date: 20100405
  Receipt Date: 20100322
  Transmission Date: 20101027
  Serious: Yes (Death, Hospitalization, Disabling)
  Sender: FDA-Public Use
  Company Number: 2009AC000213

PATIENT
  Age: 70 Year
  Sex: Male

DRUGS (38)
  1. DIGOXIN [Suspect]
     Dosage: 0.25 MG;QD;PO
     Route: 048
     Dates: start: 20000101, end: 20071101
  2. DIGOXIN [Suspect]
     Dosage: 0.25 MG;QD;PO
     Route: 048
     Dates: start: 19970801
  3. DIGOXIN [Suspect]
     Dosage: 0.375 MG;QD;PO
     Route: 048
     Dates: start: 20071101, end: 20071108
  4. DIGOXIN [Suspect]
     Dosage: .25 MG;QD;PO
     Route: 048
     Dates: start: 20071108, end: 20071120
  5. DIGOXIN [Suspect]
     Dosage: 0.5 MG;QD;PO
     Route: 048
     Dates: start: 20071120
  6. COUMADIN [Concomitant]
  7. HEPARIN [Concomitant]
  8. METOPROLOL TARTRATE [Concomitant]
  9. PHENYTOIN [Concomitant]
  10. ALBUTEROL [Concomitant]
  11. ATROVENT [Concomitant]
  12. OCUFLOX [Concomitant]
  13. ZYRTEC [Concomitant]
  14. TRIMOX [Concomitant]
  15. IBUPROFEN [Concomitant]
  16. VIAGRA [Concomitant]
  17. AMOXICILLIN [Concomitant]
  18. PROAIR HFA [Concomitant]
  19. FUROSEMIDE [Concomitant]
  20. ADVAIR DISKUS 100/50 [Concomitant]
  21. ALUPENT [Concomitant]
  22. THEODAIRE [Concomitant]
  23. ADVAIR DISKUS 100/50 [Concomitant]
  24. FUROSEMIDE [Concomitant]
  25. WARFARIN SODIUM [Concomitant]
  26. METOPROLOL TARTRATE [Concomitant]
  27. PHENYTOIN [Concomitant]
  28. ATORVENT [Concomitant]
  29. AEROBID [Concomitant]
  30. COUMADIN [Concomitant]
  31. TOPROL-XL [Concomitant]
  32. DILANTIN [Concomitant]
  33. COUMADIN [Concomitant]
  34. LASIX [Concomitant]
  35. ADVAIR DISKUS 100/50 [Concomitant]
  36. ALBUTEROL [Concomitant]
  37. METOPROLOL TARTRATE [Concomitant]
  38. DILANTIN [Concomitant]

REACTIONS (48)
  - AORTIC STENOSIS [None]
  - ASTHENIA [None]
  - BRADYCARDIA [None]
  - CARDIAC ARREST [None]
  - CARDIOMEGALY [None]
  - CAROTID ARTERIOSCLEROSIS [None]
  - COAGULOPATHY [None]
  - DEPRESSION [None]
  - DIARRHOEA [None]
  - DISEASE COMPLICATION [None]
  - DISEASE RECURRENCE [None]
  - DISORIENTATION [None]
  - DIZZINESS [None]
  - DROOLING [None]
  - ECONOMIC PROBLEM [None]
  - EMOTIONAL DISORDER [None]
  - FALL [None]
  - FATIGUE [None]
  - GASTROINTESTINAL HAEMORRHAGE [None]
  - HAEMODIALYSIS [None]
  - HAEMOTHORAX [None]
  - HEPATIC FAILURE [None]
  - HYPOTENSION [None]
  - INJURY [None]
  - INTERNATIONAL NORMALISED RATIO DECREASED [None]
  - MALAISE [None]
  - MENTAL STATUS CHANGES [None]
  - MITRAL VALVE STENOSIS [None]
  - MULTI-ORGAN FAILURE [None]
  - MULTIPLE FRACTURES [None]
  - MULTIPLE INJURIES [None]
  - MUSCLE TWITCHING [None]
  - NASAL CONGESTION [None]
  - ORTHOPNOEA [None]
  - PAIN [None]
  - PNEUMONIA [None]
  - POLLAKIURIA [None]
  - REFUSAL OF TREATMENT BY PATIENT [None]
  - RENAL FAILURE [None]
  - RESPIRATORY FAILURE [None]
  - RIB FRACTURE [None]
  - SEPSIS [None]
  - SOCIAL PROBLEM [None]
  - SURGICAL PROCEDURE REPEATED [None]
  - THERAPEUTIC AGENT TOXICITY [None]
  - TRANSIENT ISCHAEMIC ATTACK [None]
  - TRAUMATIC LUNG INJURY [None]
  - VISUAL IMPAIRMENT [None]
